FAERS Safety Report 6144432-2 (Version None)
Quarter: 2009Q2

REPORT INFORMATION
  Report Type: 
  Country: None (occurrence: None)
  Receive Date: 20090406
  Receipt Date: 20090303
  Transmission Date: 20091009
  Serious: Yes (Hospitalization, Other)
  Sender: FDA-Public Use
  Company Number: US-TEVA-176031USA

PATIENT
  Sex: Female

DRUGS (11)
  1. COPAXONE [Suspect]
     Indication: MULTIPLE SCLEROSIS
     Route: 058
     Dates: start: 20061001, end: 20080201
  2. CLONAZEPAM [Concomitant]
     Dosage: BID   2HS
     Dates: start: 20000101
  3. CYCLOBENZAPRINE [Concomitant]
     Indication: MUSCLE SPASMS
  4. CLIMEN [Concomitant]
     Dosage: .25 1 X WK
  5. BACLOFEN [Concomitant]
     Indication: MULTIPLE SCLEROSIS
  6. LAMOTRIGINE [Concomitant]
     Indication: CONVULSION
     Dosage: BID
  7. LORAZEPAM [Concomitant]
  8. PARACETAMOL [Concomitant]
  9. METHYLPHENIDATE HCL [Concomitant]
     Dosage: TID
  10. QUINIDINE HCL [Concomitant]
     Dosage: AM AND HS
  11. DEXAMETHASONE [Concomitant]
     Dosage: QID

REACTIONS (3)
  - BREAST CANCER [None]
  - CONVULSION [None]
  - ERYTHEMA NODOSUM [None]
